FAERS Safety Report 4420401-5 (Version None)
Quarter: 2004Q3

REPORT INFORMATION
  Report Type: 
  Country: None (occurrence: None)
  Receive Date: 20040809
  Receipt Date: 20040219
  Transmission Date: 20050211
  Serious: No
  Sender: FDA-Public Use
  Company Number: US-GLAXOSMITHKLINE-A0498845A

PATIENT
  Sex: Female

DRUGS (10)
  1. PAXIL CR [Suspect]
     Indication: DEPRESSION
     Dosage: 25MG PER DAY
     Route: 048
     Dates: start: 20020101, end: 20040205
  2. LASIX [Concomitant]
  3. ZOCOR [Concomitant]
  4. AVAPRO [Concomitant]
  5. POTASSIUM [Concomitant]
  6. DARVOCET [Concomitant]
  7. INSULIN [Concomitant]
  8. ASPIRIN [Concomitant]
  9. GLUCOTROL [Concomitant]
  10. NAVAPRO [Concomitant]

REACTIONS (2)
  - DRUG WITHDRAWAL SYNDROME [None]
  - FEELING ABNORMAL [None]
